FAERS Safety Report 14014266 (Version 1)
Quarter: 2017Q3

REPORT INFORMATION
  Report Type: Spontaneous
  Country: LK (occurrence: LK)
  Receive Date: 20170927
  Receipt Date: 20170927
  Transmission Date: 20171128
  Serious: Yes (Hospitalization)
  Sender: FDA-Public Use
  Company Number: LK-ENDO PHARMACEUTICALS INC-2017-005092

PATIENT
  Age: 21 Year
  Sex: Male

DRUGS (3)
  1. HYDROCORTISONE. [Concomitant]
     Active Substance: HYDROCORTISONE
     Indication: ANAPHYLACTIC REACTION
     Dosage: 200 MG, SINGLE
     Route: 042
  2. CHLORPHENIRAMINE                   /00072501/ [Concomitant]
     Active Substance: CHLORPHENIRAMINE
     Indication: ANAPHYLACTIC REACTION
     Dosage: 10 MG, SINGLE
     Route: 042
  3. ADRENALIN [Suspect]
     Active Substance: EPINEPHRINE
     Indication: ANAPHYLACTIC REACTION
     Dosage: 0.5 ML, SINGLE, 1:1000 SOLUTION
     Route: 030

REACTIONS (1)
  - Acute myocardial infarction [Recovered/Resolved]
